FAERS Safety Report 20911935 (Version 1)
Quarter: 2022Q2

REPORT INFORMATION
  Report Type: Spontaneous
  Country: IT (occurrence: IT)
  Receive Date: 20220603
  Receipt Date: 20220603
  Transmission Date: 20220721
  Serious: Yes (Hospitalization)
  Sender: FDA-Public Use
  Company Number: IT-MYLANLABS-2022M1042034

PATIENT
  Age: 40 Year
  Sex: Female

DRUGS (12)
  1. EPINEPHRINE [Suspect]
     Active Substance: EPINEPHRINE
     Indication: Asthma
     Dosage: 6.85 MILLIGRAM
     Route: 040
     Dates: start: 2020
  2. EPINEPHRINE [Suspect]
     Active Substance: EPINEPHRINE
     Indication: Asthma
     Dosage: 5 MILLIGRAM
     Route: 058
     Dates: start: 2020
  3. EPINEPHRINE [Suspect]
     Active Substance: EPINEPHRINE
     Indication: Asthma
     Dosage: 21.5 MILLIGRAM
     Route: 055
     Dates: start: 2020
  4. MONTELUKAST [Suspect]
     Active Substance: MONTELUKAST SODIUM
     Indication: Asthma
     Dosage: 10 MILLIGRAM, QD
     Route: 055
     Dates: start: 2020
  5. TIOTROPIUM [Suspect]
     Active Substance: TIOTROPIUM
     Indication: Asthma
     Dosage: 5 MICROGRAM, BID
     Route: 055
     Dates: start: 2020
  6. AMINOPHYLLINE [Suspect]
     Active Substance: AMINOPHYLLINE
     Indication: Asthma
     Dosage: UNK
     Route: 042
     Dates: start: 2020
  7. MAGNESIUM SULFATE [Suspect]
     Active Substance: MAGNESIUM SULFATE
     Indication: Asthma
     Dosage: 2 GRAM, QD
     Route: 042
     Dates: start: 2020
  8. METHYLPREDNISOLONE [Suspect]
     Active Substance: METHYLPREDNISOLONE
     Indication: Asthma
     Dosage: 1 MILLIGRAM/KILOGRAM, QD
     Route: 065
     Dates: start: 2020
  9. BECLOMETHASONE\FORMOTEROL [Suspect]
     Active Substance: BECLOMETHASONE\FORMOTEROL
     Indication: Asthma
     Dosage: UNK UNK, TID (2 INHALATIONS THREE TIMES DAILY)
     Route: 055
     Dates: start: 2020
  10. BECLOMETHASONE\FORMOTEROL [Concomitant]
     Active Substance: BECLOMETHASONE\FORMOTEROL
     Indication: Asthma
     Dosage: UNK, TID (2 INHALATIONS THREE TIMES DAILY)
     Route: 055
     Dates: start: 2014
  11. METHYLPREDNISOLONE [Concomitant]
     Active Substance: METHYLPREDNISOLONE
     Indication: Asthma
     Dosage: UNK
     Route: 042
     Dates: start: 2020
  12. OMALIZUMAB [Concomitant]
     Active Substance: OMALIZUMAB
     Indication: Asthma
     Dosage: 300 MILLIGRAM, MONTHLY
     Route: 048
     Dates: start: 2014

REACTIONS (3)
  - Hypoaesthesia [Recovering/Resolving]
  - Headache [Recovering/Resolving]
  - Drug ineffective [Unknown]

NARRATIVE: CASE EVENT DATE: 20200101
